FAERS Safety Report 19974728 (Version 1)
Quarter: 2021Q4

REPORT INFORMATION
  Report Type: Spontaneous
  Country: US (occurrence: US)
  Receive Date: 20211020
  Receipt Date: 20211020
  Transmission Date: 20220303
  Serious: No
  Sender: FDA-Public Use
  Company Number: US-INSMED, INC.-2021-09008-US

PATIENT

DRUGS (2)
  1. ARIKAYCE [Suspect]
     Active Substance: AMIKACIN
     Indication: Product used for unknown indication
     Dosage: UNK, QD
     Route: 055
     Dates: start: 20210716, end: 20210716
  2. ARIKAYCE [Suspect]
     Active Substance: AMIKACIN
     Dosage: UNK, TIW
     Route: 055
     Dates: start: 20210716

REACTIONS (1)
  - Off label use [Unknown]
